FAERS Safety Report 16337807 (Version 1)
Quarter: 2019Q2

REPORT INFORMATION
  Report Type: Report from Study
  Country: US (occurrence: US)
  Receive Date: 20190521
  Receipt Date: 20190521
  Transmission Date: 20190711
  Serious: Yes (Death, Life-Threatening, Hospitalization, Other)
  Sender: FDA-Public Use
  Company Number: US-BRISTOL-MYERS SQUIBB COMPANY-BMS-2019-042009

PATIENT
  Sex: Female

DRUGS (3)
  1. IPILIMUMAB [Suspect]
     Active Substance: IPILIMUMAB
     Indication: ACUTE MYELOID LEUKAEMIA
     Dosage: UNK
     Route: 065
     Dates: end: 20190426
  2. NIVOLUMAB [Suspect]
     Active Substance: NIVOLUMAB
     Indication: ACUTE MYELOID LEUKAEMIA
     Dosage: UNK
     Route: 065
     Dates: end: 20190426
  3. 5-AZACYTIDINE [Suspect]
     Active Substance: AZACITIDINE
     Indication: ACUTE MYELOID LEUKAEMIA
     Dosage: 50 MILLIGRAM/SQ. METER
     Route: 042
     Dates: end: 20190426

REACTIONS (8)
  - Autoimmune hepatitis [Unknown]
  - Respiratory distress [Unknown]
  - Haemophagocytic lymphohistiocytosis [Fatal]
  - Acute kidney injury [Unknown]
  - Respiratory failure [Unknown]
  - Febrile neutropenia [Unknown]
  - Hepatic failure [Unknown]
  - Pneumonia [Unknown]

NARRATIVE: CASE EVENT DATE: 20190419
